FAERS Safety Report 21727791 (Version 2)
Quarter: 2022Q4

REPORT INFORMATION
  Report Type: Spontaneous
  Country: US (occurrence: US)
  Receive Date: 20221214
  Receipt Date: 20221216
  Transmission Date: 20230113
  Serious: No
  Sender: FDA-Public Use
  Company Number: US-PFIZER INC-202201364210

PATIENT
  Sex: Female

DRUGS (1)
  1. PAXLOVID [Suspect]
     Active Substance: NIRMATRELVIR\RITONAVIR
     Indication: COVID-19 treatment
     Dosage: UNK

REACTIONS (6)
  - Respiratory tract congestion [Unknown]
  - Dyspnoea [Unknown]
  - Nasal congestion [Unknown]
  - Sinus congestion [Unknown]
  - Upper respiratory tract congestion [Unknown]
  - Muscular weakness [Unknown]
